FAERS Safety Report 4874935-X (Version None)
Quarter: 2006Q1

REPORT INFORMATION
  Report Type: 
  Country: None (occurrence: None)
  Receive Date: 20060109
  Receipt Date: 20051004
  Transmission Date: 20060701
  Serious: Yes (Other)
  Sender: FDA-Public Use
  Company Number: US-BOEHRINGER INGELHEIM PHARMACEUTICALS, INC.-2005-BP-17633BP

PATIENT
  Sex: Female
  Weight: 74.84 kg

DRUGS (4)
  1. SPIRIVA [Suspect]
     Indication: CHRONIC OBSTRUCTIVE PULMONARY DISEASE
     Route: 055
     Dates: start: 20050201
  2. SPIRIVA [Suspect]
     Indication: EMPHYSEMA
  3. DILANTIN [Suspect]
  4. IBUPROFEN [Suspect]

REACTIONS (3)
  - CHOKING [None]
  - DYSPHAGIA [None]
  - GRAND MAL CONVULSION [None]
